FAERS Safety Report 21935025 (Version 1)
Quarter: 2023Q1

REPORT INFORMATION
  Report Type: Spontaneous
  Country: CA (occurrence: CA)
  Receive Date: 20230201
  Receipt Date: 20230201
  Transmission Date: 20230417
  Serious: Yes (Hospitalization, Other)
  Sender: FDA-Public Use
  Company Number: CA-ORGANON-O2301CAN002561

PATIENT
  Age: 37 Year
  Sex: Male

DRUGS (8)
  1. MAXALT [Suspect]
     Active Substance: RIZATRIPTAN BENZOATE
     Indication: Migraine
     Dosage: 10 MILLIGRAM, AS REQUIRED (FORMULATION REPORTED AS ORALLY DISINTEGRATING)
     Route: 048
  2. ESCITALOPRAM [Suspect]
     Active Substance: ESCITALOPRAM OXALATE
     Indication: Anxiety
     Dosage: 20 MILLIGRAM, 1 EVERY 1 DAY
     Route: 048
  3. AMITRIPTYLINE [Concomitant]
     Active Substance: AMITRIPTYLINE
     Dosage: UNK
     Route: 065
  4. CANNABIS SATIVA SUBSP. INDICA TOP [Concomitant]
     Active Substance: CANNABIS SATIVA SUBSP. INDICA TOP
     Dosage: UNK
     Route: 065
  5. LORAZEPAM [Concomitant]
     Active Substance: LORAZEPAM
     Dosage: UNK; DOSAGE FORM: NOT SPECIFIED
     Route: 065
  6. METOCLOPRAMIDE [Concomitant]
     Active Substance: METOCLOPRAMIDE
     Dosage: UNK; DOSAGE FORM: NOT SPECIFIED
     Route: 065
  7. NAPROXEN [Concomitant]
     Active Substance: NAPROXEN
     Dosage: UNK; DOSAGE FORM: NOT SPECIFIED
     Route: 065
  8. PREDNISONE [Concomitant]
     Active Substance: PREDNISONE
     Dosage: UNK; DOSAGE FORM: NOT SPECIFIED
     Route: 065

REACTIONS (5)
  - Cerebellar haemorrhage [Unknown]
  - Clumsiness [Unknown]
  - Headache [Unknown]
  - Reversible cerebral vasoconstriction syndrome [Unknown]
  - Venous angioma of brain [Unknown]
